FAERS Safety Report 24613700 (Version 1)
Quarter: 2024Q4

REPORT INFORMATION
  Report Type: Spontaneous
  Country: CN (occurrence: CN)
  Receive Date: 20241113
  Receipt Date: 20241113
  Transmission Date: 20250115
  Serious: Yes (Hospitalization)
  Sender: ALEXION PHARMACEUTICALS
  Company Number: CN-ASTRAZENECA-202411CHN003735CN

PATIENT
  Age: 60 Year

DRUGS (1)
  1. BRILINTA [Suspect]
     Active Substance: TICAGRELOR
     Indication: Platelet aggregation abnormal
     Dosage: 90 MILLIGRAM, BID

REACTIONS (1)
  - Tachypnoea [Recovered/Resolved]
